FAERS Safety Report 8284384-2 (Version None)
Quarter: 2012Q2

REPORT INFORMATION
  Report Type: 
  Country: None (occurrence: None)
  Receive Date: 20120413
  Receipt Date: 20111102
  Transmission Date: 20120825
  Serious: No
  Sender: FDA-Public Use
  Company Number: US-ASTRAZENECA-2011SE66682

PATIENT
  Sex: Female

DRUGS (2)
  1. DILANTA [Concomitant]
  2. NEXIUM [Suspect]
     Route: 048

REACTIONS (6)
  - RESPIRATORY DISORDER [None]
  - DRUG DOSE OMISSION [None]
  - PALPITATIONS [None]
  - DIZZINESS [None]
  - FALL [None]
  - MALAISE [None]
